FAERS Safety Report 16388465 (Version 1)
Quarter: 2019Q3

REPORT INFORMATION
  Report Type: Spontaneous
  Country: US (occurrence: US)
  Receive Date: 20190601
  Receipt Date: 20190601
  Transmission Date: 20191004
  Serious: Yes (Other)
  Sender: FDA-Public Use
  Company Number: None

PATIENT
  Age: 32 Year
  Sex: Female
  Weight: 80.1 kg

DRUGS (2)
  1. METHYLPHENIDATE ER 36 MG [Suspect]
     Active Substance: METHYLPHENIDATE
     Dosage: ?          QUANTITY:1 TABLET(S);?
     Route: 048
     Dates: start: 20190516, end: 20190526
  2. DELSYM [Concomitant]
     Active Substance: DEXTROMETHORPHAN

REACTIONS (4)
  - Product dispensing error [None]
  - Wrong product administered [None]
  - Confusional state [None]
  - Tremor [None]

NARRATIVE: CASE EVENT DATE: 20190516
